FAERS Safety Report 8325009-7 (Version None)
Quarter: 2012Q2

REPORT INFORMATION
  Report Type: 
  Country: None (occurrence: None)
  Receive Date: 20120501
  Receipt Date: 20120420
  Transmission Date: 20120825
  Serious: Yes (Hospitalization)
  Sender: FDA-Public Use
  Company Number: GB-BRISTOL-MYERS SQUIBB COMPANY-16505505

PATIENT
  Age: 48 Year
  Sex: Female
  Weight: 86 kg

DRUGS (12)
  1. LEVOTHYROXINE SODIUM [Concomitant]
     Dosage: TABS
     Route: 048
  2. CARBOPLATIN [Suspect]
     Indication: SMALL CELL LUNG CANCER EXTENSIVE STAGE
     Dosage: INTERRUPTED ON 16MAR2012
     Dates: start: 20120105
  3. BECLOMETHASONE DIPROPIONATE [Concomitant]
     Dosage: INHALER 1DF=2 PUFFS
     Route: 048
  4. AMOXICILLIN AND CLAVULANATE POTASSIUM [Concomitant]
     Dosage: TABS
     Route: 048
  5. TINZAPARIN [Suspect]
  6. ALBUTEROL [Concomitant]
     Dosage: 1DF=2 PUFFS INHALER
     Route: 048
  7. METOCLOPRAMIDE [Concomitant]
     Dosage: TABS
     Route: 048
  8. ACETAMINOPHEN [Concomitant]
     Route: 048
  9. ETOPOSIDE [Suspect]
     Indication: SMALL CELL LUNG CANCER EXTENSIVE STAGE
     Dosage: INTERRUPTED ON 16MAR2012
     Dates: start: 20120102
  10. OMEPRAZOLE [Concomitant]
     Dosage: CAPSULES
     Route: 048
  11. IPILIMUMAB [Suspect]
     Indication: SMALL CELL LUNG CANCER STAGE UNSPECIFIED
     Dosage: INTERRUPTED ON 16MAR2012
     Dates: start: 20120224
  12. ZOPICLONE [Concomitant]
     Dosage: TABS
     Route: 048

REACTIONS (6)
  - PULMONARY HAEMORRHAGE [None]
  - LOWER RESPIRATORY TRACT INFECTION [None]
  - HAEMOGLOBIN DECREASED [None]
  - TACHYCARDIA [None]
  - HAEMOPTYSIS [None]
  - PLATELET COUNT INCREASED [None]
